FAERS Safety Report 22232550 (Version 1)
Quarter: 2023Q2

REPORT INFORMATION
  Report Type: Spontaneous
  Country: US (occurrence: None)
  Receive Date: 20230420
  Receipt Date: 20230420
  Transmission Date: 20230722
  Serious: No
  Sender: FDA-Public Use
  Company Number: US-ROCHE-3141072

PATIENT
  Age: 81 Year
  Sex: Female
  Weight: 83.990 kg

DRUGS (1)
  1. ESBRIET [Suspect]
     Active Substance: PIRFENIDONE
     Indication: Idiopathic pulmonary fibrosis
     Dosage: TID  ONGOING : UNKNOWN
     Route: 048
     Dates: start: 20220603

REACTIONS (5)
  - Medication error [Unknown]
  - COVID-19 [Unknown]
  - Abdominal discomfort [Unknown]
  - Vomiting [Unknown]
  - Cold sweat [Unknown]

NARRATIVE: CASE EVENT DATE: 20220713
